FAERS Safety Report 10226780 (Version 3)
Quarter: 2014Q3

REPORT INFORMATION
  Report Type: Report from Study
  Country: BR (occurrence: BR)
  Receive Date: 20140610
  Receipt Date: 20140723
  Transmission Date: 20150326
  Serious: Yes (Hospitalization)
  Sender: FDA-Public Use
  Company Number: BR-ROCHE-1236742

PATIENT
  Age: 65 Year
  Sex: Female
  Weight: 52 kg

DRUGS (5)
  1. CALTREN [Concomitant]
     Active Substance: NITRENDIPINE
  2. DIABINESE [Concomitant]
     Active Substance: CHLORPROPAMIDE
     Indication: DIABETES MELLITUS
  3. ACTEMRA [Suspect]
     Active Substance: TOCILIZUMAB
     Indication: RHEUMATOID ARTHRITIS
     Dosage: THE MOST RECENT INFUSION RECEIVED ON 01/FEB/2013 PRIOR TO ONSET OF THE SAE
     Route: 065
     Dates: start: 20120604, end: 201403
  4. ENALAPRIL [Concomitant]
     Active Substance: ENALAPRIL
  5. NIMESULIDE [Concomitant]
     Active Substance: NIMESULIDE
     Indication: ARTHRALGIA
     Route: 065

REACTIONS (5)
  - Urinary tract infection [Not Recovered/Not Resolved]
  - Drug dose omission [Unknown]
  - Pain [Not Recovered/Not Resolved]
  - Urinary tract infection [Unknown]
  - Lung disorder [Recovering/Resolving]

NARRATIVE: CASE EVENT DATE: 2013
